FAERS Safety Report 21990385 (Version 1)
Quarter: 2023Q1

REPORT INFORMATION
  Report Type: Spontaneous
  Country: US (occurrence: None)
  Receive Date: 20230213
  Receipt Date: 20230213
  Transmission Date: 20230418
  Serious: No
  Sender: FDA-Public Use
  Company Number: None

PATIENT
  Age: 55 Year
  Sex: Female
  Weight: 58.51 kg

DRUGS (1)
  1. CYCLOSPORINE [Suspect]
     Active Substance: CYCLOSPORINE
     Indication: Dry eye
     Dosage: 1 DROP  2XA DAY BOTH EYES
     Route: 031
     Dates: start: 20220811, end: 20220815

REACTIONS (3)
  - Pain [None]
  - Burning sensation [None]
  - Discomfort [None]

NARRATIVE: CASE EVENT DATE: 20220815
